FAERS Safety Report 4485886-7 (Version None)
Quarter: 2004Q4

REPORT INFORMATION
  Report Type: 
  Country: None (occurrence: None)
  Receive Date: 20041022
  Receipt Date: 20041014
  Transmission Date: 20050328
  Serious: Yes (Other)
  Sender: FDA-Public Use
  Company Number: 2004239537US

PATIENT
  Sex: Male

DRUGS (1)
  1. BEXTRA [Suspect]

REACTIONS (1)
  - HEPATIC FAILURE [None]
